FAERS Safety Report 7068098-2 (Version None)
Quarter: 2010Q4

REPORT INFORMATION
  Report Type: 
  Country: None (occurrence: None)
  Receive Date: 20101027
  Receipt Date: 20101027
  Transmission Date: 20110411
  Serious: No
  Sender: FDA-Public Use
  Company Number: None

PATIENT
  Age: 9 Month
  Sex: Male
  Weight: 9.9791 kg

DRUGS (1)
  1. TEETHING TABLETS NO STRENGTH LISTED HYLAND'S [Suspect]
     Indication: TEETHING
     Dosage: 2-3 TABLETS UP TO 4 TIMES DAIL SL
     Route: 060
     Dates: start: 20100701, end: 20101024

REACTIONS (1)
  - CONSTIPATION [None]
